FAERS Safety Report 9981435 (Version 1)
Quarter: 2014Q1

REPORT INFORMATION
  Report Type: Report from Study
  Country: US (occurrence: US)
  Receive Date: 20140307
  Receipt Date: 20140307
  Transmission Date: 20141002
  Serious: Yes (Other)
  Sender: FDA-Public Use
  Company Number: US-BRISTOL-MYERS SQUIBB COMPANY-20328134

PATIENT
  Age: 76 Year
  Sex: Female
  Weight: 77.1 kg

DRUGS (7)
  1. ABATACEPT SUBQ INJECTION 125MG/ML [Suspect]
     Indication: RHEUMATOID ARTHRITIS
     Dosage: LAST DOSE ON 18FEB14
     Route: 058
     Dates: start: 2013
  2. ATENOLOL [Concomitant]
     Indication: HYPERTENSION
  3. OMEPRAZOLE [Concomitant]
     Indication: GASTROOESOPHAGEAL REFLUX DISEASE
  4. COUMADIN [Concomitant]
  5. VYTORIN 10/40 [Concomitant]
     Indication: BLOOD CHOLESTEROL INCREASED
     Dosage: 1DF=10/40 UNITS NOS
  6. LASIX [Concomitant]
  7. POTASSIUM [Concomitant]

REACTIONS (2)
  - Renal disorder [Unknown]
  - Dysgeusia [Unknown]
